FAERS Safety Report 7929756-8 (Version None)
Quarter: 2011Q4

REPORT INFORMATION
  Report Type: 
  Country: None (occurrence: None)
  Receive Date: 20111121
  Receipt Date: 20111115
  Transmission Date: 20120403
  Serious: Yes (Death, Hospitalization, Other)
  Sender: FDA-Public Use
  Company Number: PHEH2011US08230

PATIENT
  Sex: Female

DRUGS (2)
  1. EXJADE [Suspect]
     Indication: MYELODYSPLASTIC SYNDROME
     Dosage: 250 MG, DRINK 5 TIMES WEEKLY
     Route: 048
  2. EXJADE [Suspect]
     Indication: APLASTIC ANAEMIA
     Dates: start: 20100710

REACTIONS (17)
  - T-CELL TYPE ACUTE LEUKAEMIA [None]
  - RENAL FAILURE ACUTE [None]
  - HYPOTENSION [None]
  - RENAL TUBULAR NECROSIS [None]
  - HAEMOGLOBIN DECREASED [None]
  - LYMPHOMA [None]
  - NEUTROPENIA [None]
  - TYPE 2 DIABETES MELLITUS [None]
  - PANCYTOPENIA [None]
  - ACUTE RESPIRATORY FAILURE [None]
  - PNEUMONIA [None]
  - PLATELET COUNT DECREASED [None]
  - ATRIAL FIBRILLATION [None]
  - RESPIRATORY DISTRESS [None]
  - HYPERTENSION [None]
  - TACHYCARDIA [None]
  - PYREXIA [None]
